FAERS Safety Report 6503499-X (Version None)
Quarter: 2009Q4

REPORT INFORMATION
  Report Type: 
  Country: None (occurrence: None)
  Receive Date: 20091217
  Receipt Date: 20091208
  Transmission Date: 20100525
  Serious: Yes (Death)
  Sender: FDA-Public Use
  Company Number: JP-PFIZER INC-2009222522

PATIENT
  Age: 64 Year
  Sex: Male
  Weight: 51 kg

DRUGS (6)
  1. SUNITINIB MALATE [Suspect]
     Indication: RENAL CELL CARCINOMA
     Dosage: 37.5 MG, 1X/DAY
     Route: 048
     Dates: start: 20090320, end: 20090416
  2. LASIX [Concomitant]
  3. CIMETIDINE [Concomitant]
  4. LOXONIN [Concomitant]
  5. DEPAS [Concomitant]
  6. THYRADIN S [Concomitant]

REACTIONS (2)
  - DISEASE PROGRESSION [None]
  - RENAL CELL CARCINOMA [None]
